FAERS Safety Report 5158926-X (Version None)
Quarter: 2006Q4

REPORT INFORMATION
  Report Type: 
  Country: None (occurrence: None)
  Receive Date: 20061128
  Receipt Date: 20061120
  Transmission Date: 20070319
  Serious: Yes (Death)
  Sender: FDA-Public Use
  Company Number: US-BRISTOL-MYERS SQUIBB COMPANY-13584263

PATIENT
  Age: 84 Year
  Sex: Male
  Weight: 59 kg

DRUGS (9)
  1. ABILIFY [Suspect]
     Indication: ABNORMAL BEHAVIOUR
     Dosage: 5 MG, 2 TABETS DAILY, REDUCED TO 5MG 1 TAB AT NIGHT AND 1/2 TAB IN AM
     Dates: start: 20060801
  2. ABILIFY [Suspect]
     Indication: MOOD SWINGS
     Dosage: 5 MG, 2 TABETS DAILY, REDUCED TO 5MG 1 TAB AT NIGHT AND 1/2 TAB IN AM
     Dates: start: 20060801
  3. PLAVIX [Suspect]
     Indication: CARDIAC DISORDER
     Dosage: DURATION OF THERAPY:  1  TO 1.5 YEARS
  4. VYTORIN [Concomitant]
     Dosage: DOSE VALUE:  10/20 MG.  DURATION OF THERAPY:  3 TO 4 YEARS
  5. FLORINEF [Concomitant]
     Dates: start: 20051201
  6. SYNTHROID [Concomitant]
  7. NAMENDA [Concomitant]
     Dates: start: 20051201
  8. ATIVAN [Concomitant]
     Dosage: DOSE VALUE:  1 TAB TWICE DAILY, THEN 1 TABLET DAILY
     Dates: start: 20060601, end: 20061001
  9. NOVOLIN R [Concomitant]

REACTIONS (1)
  - DEATH [None]
